FAERS Safety Report 15421113 (Version 6)
Quarter: 2019Q1

REPORT INFORMATION
  Report Type: Report from Study
  Country: US (occurrence: US)
  Receive Date: 20180924
  Receipt Date: 20190322
  Transmission Date: 20190417
  Serious: Yes (Death, Hospitalization)
  Sender: FDA-Public Use
  Company Number: US-ACTELION-A-NJ2018-176014

PATIENT
  Age: 67 Year
  Sex: Male
  Weight: 65.76 kg

DRUGS (45)
  1. VELETRI [Suspect]
     Active Substance: EPOPROSTENOL
     Indication: PULMONARY ARTERIAL HYPERTENSION
     Dosage: 10 NG/KG, PER MIN
     Route: 042
     Dates: start: 20100604
  2. VELETRI [Suspect]
     Active Substance: EPOPROSTENOL
     Dosage: 14 NG/KG, PER MIN
     Route: 042
     Dates: start: 20100604
  3. LETAIRIS [Suspect]
     Active Substance: AMBRISENTAN
     Indication: PULMONARY ARTERIAL HYPERTENSION
     Dosage: 10 MG, QD
     Route: 048
     Dates: start: 20180822
  4. NORCO [Concomitant]
     Active Substance: ACETAMINOPHEN\HYDROCODONE BITARTRATE
     Dosage: 5-325 MG, Q6HRS, PRN
     Route: 048
     Dates: start: 20180711
  5. ZAROXOLYN [Concomitant]
     Active Substance: METOLAZONE
     Indication: OEDEMA PERIPHERAL
     Dosage: 2.5 MG, UNK
     Route: 048
     Dates: start: 20180702
  6. ZAROXOLYN [Concomitant]
     Active Substance: METOLAZONE
     Dosage: 2.5 MG, PRN FOR WEIGHT GAIN }152)
     Route: 048
     Dates: start: 20180702
  7. DILAUDID [Concomitant]
     Active Substance: HYDROMORPHONE HYDROCHLORIDE
     Dosage: UNK
     Route: 042
     Dates: start: 20180824
  8. MAGNESIUM SULFATE. [Concomitant]
     Active Substance: MAGNESIUM SULFATE
     Dosage: UNK
     Route: 042
     Dates: start: 20180829
  9. ASPIRIN. [Concomitant]
     Active Substance: ASPIRIN
     Dosage: 81 MG, QD
     Route: 048
  10. CLOBETASOL [Concomitant]
     Active Substance: CLOBETASOL
     Indication: ECZEMA
     Dosage: 0.05% CREAM, APPLY TOPICALLY BID, PRN
     Route: 061
  11. LIPITOR [Concomitant]
     Active Substance: ATORVASTATIN CALCIUM
     Dosage: 40 MG, QD
     Route: 048
     Dates: start: 20180803
  12. KLOR-CON [Concomitant]
     Active Substance: POTASSIUM CHLORIDE
     Dosage: UNK, QD
     Route: 048
     Dates: start: 20180702
  13. B-COMPLEX + VITAMIN C [Concomitant]
     Dosage: UNK, QD
     Route: 048
     Dates: start: 20180828
  14. HEPARIN [Concomitant]
     Active Substance: HEPARIN SODIUM
     Dosage: 3 ML/HR, UNK
     Route: 013
     Dates: start: 20180821
  15. DUONEB [Concomitant]
     Active Substance: ALBUTEROL SULFATE\IPRATROPIUM BROMIDE
     Dosage: UNK
     Dates: start: 20180822
  16. VERSED [Concomitant]
     Active Substance: MIDAZOLAM HYDROCHLORIDE
     Dosage: UNK, PRN
     Route: 042
     Dates: start: 20180821
  17. PROTONIX [Concomitant]
     Active Substance: PANTOPRAZOLE SODIUM
     Dosage: 40 MG, QD
     Dates: start: 20180822
  18. CHLORASEPTIC SORE THROAT [Concomitant]
     Active Substance: PHENOL
     Dosage: UNK
     Dates: start: 20180828
  19. OXYGEN. [Concomitant]
     Active Substance: OXYGEN
     Indication: PULMONARY HYPERTENSION
     Dosage: 8 L/MIN, CONTINUOUS
     Route: 039
     Dates: start: 20180315
  20. LAMISIL [Concomitant]
     Active Substance: TERBINAFINE HYDROCHLORIDE
     Dosage: 1% CREAM (30G), APPLY TOPICALLY BID
     Route: 061
     Dates: start: 20180709
  21. KLONOPIN [Concomitant]
     Active Substance: CLONAZEPAM
     Indication: ANXIETY
     Dosage: 0.5 MG, BID, PRN
     Route: 048
     Dates: start: 20180822
  22. EPINEPHRINE. [Concomitant]
     Active Substance: EPINEPHRINE
     Dosage: UNK
     Route: 042
     Dates: start: 20180821
  23. PURALUBE [Concomitant]
     Active Substance: MINERAL OIL\PETROLATUM
     Dosage: UNK
     Dates: start: 20180821
  24. CLONAZEPAM. [Concomitant]
     Active Substance: CLONAZEPAM
     Dosage: 0.5 MG, PRN
     Route: 048
     Dates: start: 20180803
  25. ATARAX [Concomitant]
     Active Substance: HYDROXYZINE HYDROCHLORIDE
     Dosage: 25 MG, TID, PRN
     Route: 048
     Dates: start: 20180809
  26. TESSALON [Concomitant]
     Active Substance: BENZONATATE
     Indication: COUGH
     Dosage: 100 MG, QD, PRN
     Route: 048
     Dates: start: 20180822
  27. DEMADEX [Concomitant]
     Active Substance: TORSEMIDE
     Indication: OEDEMA PERIPHERAL
     Dosage: 20 MG, BID
     Route: 048
     Dates: start: 20180615
  28. DEMADEX [Concomitant]
     Active Substance: TORSEMIDE
     Dosage: 20 MG, QD
     Route: 048
  29. INSPRA [Concomitant]
     Active Substance: EPLERENONE
     Dosage: 50 MG, QD
     Route: 048
     Dates: start: 20180828
  30. NEXIUM [Concomitant]
     Active Substance: ESOMEPRAZOLE MAGNESIUM
     Dosage: 40 MG, QPM
     Route: 048
     Dates: start: 20180709
  31. FLONASE [Concomitant]
     Active Substance: FLUTICASONE PROPIONATE
     Indication: UPPER-AIRWAY COUGH SYNDROME
     Dosage: 50 MCG, UNK
     Route: 045
     Dates: start: 20080324
  32. KLOR-CON [Concomitant]
     Active Substance: POTASSIUM CHLORIDE
     Dosage: 20 MEQ, QD
     Route: 048
  33. ADCIRCA [Concomitant]
     Active Substance: TADALAFIL
     Indication: PULMONARY HYPERTENSION
     Dosage: 20 MG, QD
     Route: 048
     Dates: start: 20180530
  34. FLONASE [Concomitant]
     Active Substance: FLUTICASONE PROPIONATE
     Dosage: 2 SPRAY EACH NOSTRIL DAILY
  35. NEURONTIN [Concomitant]
     Active Substance: GABAPENTIN
     Dosage: 600 MG, BID
     Route: 048
     Dates: start: 20160814
  36. BACTROBAN [Concomitant]
     Active Substance: MUPIROCIN\MUPIROCIN CALCIUM
     Dosage: 2% OINTMENT (30G), APPLY TOPICALLY, TID
     Route: 061
     Dates: start: 20180709
  37. PRILOSEC [Concomitant]
     Active Substance: OMEPRAZOLE MAGNESIUM
     Dosage: 40 MG, QD
     Route: 048
     Dates: start: 20180710
  38. DEMADEX [Concomitant]
     Active Substance: TORSEMIDE
     Dosage: 40 MG, QD
  39. ATROPINE. [Concomitant]
     Active Substance: ATROPINE
     Dosage: 0.5 MG, PRN
     Dates: start: 20180821
  40. PLAVIX [Concomitant]
     Active Substance: CLOPIDOGREL BISULFATE
     Dosage: 75 MG, QD
     Route: 048
     Dates: start: 20180621
  41. DEXTRAN 70 W/HYPROMELLOSE [Concomitant]
     Dosage: UNK, PRN
     Route: 047
     Dates: start: 20180821
  42. LIDODERM [Concomitant]
     Active Substance: LIDOCAINE
     Dosage: UNK
     Route: 062
     Dates: start: 20180823
  43. ROXICODONE [Concomitant]
     Active Substance: OXYCODONE HYDROCHLORIDE
     Dosage: UNK, TID
     Route: 048
     Dates: start: 20180827
  44. OCEAN MIST [Concomitant]
     Dosage: UNK
     Dates: start: 20180823
  45. MUCINEX [Concomitant]
     Active Substance: GUAIFENESIN
     Dosage: 600 MG, BID
     Route: 048

REACTIONS (53)
  - Right ventricular systolic pressure increased [Unknown]
  - Right atrial pressure increased [Unknown]
  - Headache [Unknown]
  - Hypoxia [Unknown]
  - Head injury [Unknown]
  - Oedema peripheral [Recovering/Resolving]
  - Hypotension [Unknown]
  - Death [Fatal]
  - Inferior vena cava dilatation [Unknown]
  - Pain in extremity [Unknown]
  - Nausea [Not Recovered/Not Resolved]
  - Oxygen saturation decreased [Recovered/Resolved]
  - Micturition frequency decreased [Unknown]
  - Depression [Unknown]
  - Adverse event [Unknown]
  - Pulmonary oedema [Unknown]
  - Right ventricular dilatation [Unknown]
  - Pruritus [Unknown]
  - Chronic respiratory failure [Unknown]
  - Cardiorenal syndrome [Unknown]
  - Blister [Unknown]
  - Sputum increased [Unknown]
  - Asthenia [Recovering/Resolving]
  - Tremor [Unknown]
  - Constipation [Unknown]
  - Cough [Unknown]
  - Disease progression [Recovered/Resolved]
  - Blood creatinine increased [Recovered/Resolved]
  - Malaise [Unknown]
  - Fatigue [Not Recovered/Not Resolved]
  - Sleep disorder [Unknown]
  - Treatment noncompliance [Not Recovered/Not Resolved]
  - Dyspnoea [Recovered/Resolved]
  - Pulmonary hypertension [Recovered/Resolved]
  - Cardiac failure [Unknown]
  - Acute kidney injury [Recovered/Resolved]
  - Right ventricular dysfunction [Unknown]
  - Somnolence [Unknown]
  - Pain [Unknown]
  - Chest pain [Unknown]
  - Fall [Unknown]
  - Renal failure [Unknown]
  - Chronic kidney disease [Recovering/Resolving]
  - Pain in jaw [Unknown]
  - Sleep apnoea syndrome [Unknown]
  - Coronary artery disease [Unknown]
  - Anxiety [Unknown]
  - Polyuria [Recovering/Resolving]
  - Pulmonary arterial hypertension [Recovering/Resolving]
  - Oedema [Recovering/Resolving]
  - Dyspnoea exertional [Not Recovered/Not Resolved]
  - Balance disorder [Unknown]
  - Wound infection staphylococcal [Unknown]

NARRATIVE: CASE EVENT DATE: 20180709
